FAERS Safety Report 23738001 (Version 1)
Quarter: 2024Q2

REPORT INFORMATION
  Report Type: Spontaneous
  Country: US (occurrence: None)
  Receive Date: 20240412
  Receipt Date: 20240412
  Transmission Date: 20240716
  Serious: No
  Sender: FDA-Public Use
  Company Number: None

PATIENT
  Age: 74 Year
  Sex: Male
  Weight: 87.75 kg

DRUGS (1)
  1. JAYPIRCA [Suspect]
     Active Substance: PIRTOBRUTINIB
     Indication: B-cell lymphoma
     Dosage: 200 MG DAILY ORAL
     Route: 048
     Dates: start: 20230721

REACTIONS (1)
  - Pruritus [None]

NARRATIVE: CASE EVENT DATE: 20240412
